FAERS Safety Report 5476058-8 (Version None)
Quarter: 2007Q3

REPORT INFORMATION
  Report Type: 
  Country: None (occurrence: None)
  Receive Date: 20070904
  Receipt Date: 20070403
  Transmission Date: 20080115
  Serious: Yes (Other)
  Sender: FDA-Public Use
  Company Number: 154801USA

PATIENT
  Sex: Male

DRUGS (4)
  1. METOCLOPRAMIDE [Suspect]
     Indication: DIABETIC GASTROPARESIS
  2. METOCLOPRAMIDE [Suspect]
     Indication: GASTROINTESTINAL DISORDER
  3. METOCLOPRAMIDE [Suspect]
     Indication: GASTROOESOPHAGEAL REFLUX DISEASE
  4. METOCLOPRAMIDE [Suspect]
     Indication: IRRITABLE BOWEL SYNDROME

REACTIONS (1)
  - TARDIVE DYSKINESIA [None]
